FAERS Safety Report 24383602 (Version 1)
Quarter: 2024Q4

REPORT INFORMATION
  Report Type: Spontaneous
  Country: IT (occurrence: IT)
  Receive Date: 20241001
  Receipt Date: 20241001
  Transmission Date: 20250115
  Serious: Yes (Death, Life-Threatening, Hospitalization, Disabling)
  Sender: MERCK
  Company Number: None

PATIENT
  Age: 74 Year
  Sex: Female
  Weight: 74 kg

DRUGS (1)
  1. MOLNUPIRAVIR [Suspect]
     Active Substance: MOLNUPIRAVIR
     Indication: COVID-19
     Dosage: UNK
     Route: 048
     Dates: start: 20220405, end: 20220410

REACTIONS (5)
  - Epistaxis [Fatal]
  - Decreased appetite [Fatal]
  - Asthenia [Fatal]
  - Myalgia [Fatal]
  - Abnormal loss of weight [Fatal]

NARRATIVE: CASE EVENT DATE: 20220405
